FAERS Safety Report 6025039-4 (Version None)
Quarter: 2008Q4

REPORT INFORMATION
  Report Type: 
  Country: None (occurrence: None)
  Receive Date: 20081224
  Receipt Date: 20081216
  Transmission Date: 20090506
  Serious: Yes (Death)
  Sender: FDA-Public Use
  Company Number: 2008-02399

PATIENT
  Age: 66 Year
  Sex: Female
  Weight: 45 kg

DRUGS (1)
  1. VELCADE [Suspect]
     Indication: MULTIPLE MYELOMA
     Dosage: 1.8 MG, INTRAVENOUS
     Route: 042
     Dates: start: 20080617, end: 20080624

REACTIONS (2)
  - DISEASE PROGRESSION [None]
  - RASH [None]
